FAERS Safety Report 17871795 (Version 1)
Quarter: 2020Q2

REPORT INFORMATION
  Report Type: Spontaneous
  Country: US (occurrence: US)
  Receive Date: 20200608
  Receipt Date: 20200608
  Transmission Date: 20200714
  Serious: Yes (Hospitalization)
  Sender: FDA-Public Use
  Company Number: None

PATIENT
  Age: 50 Year
  Sex: Female

DRUGS (14)
  1. CYMBALTA [Concomitant]
     Active Substance: DULOXETINE HYDROCHLORIDE
  2. XARELTO [Concomitant]
     Active Substance: RIVAROXABAN
  3. LETROZOLE. [Concomitant]
     Active Substance: LETROZOLE
  4. OXYCODONE [Concomitant]
     Active Substance: OXYCODONE
  5. IBRANCE [Suspect]
     Active Substance: PALBOCICLIB
     Indication: NEOPLASM MALIGNANT
     Route: 048
  6. MIRTAZAPINE. [Concomitant]
     Active Substance: MIRTAZAPINE
  7. POTASSIUM [Concomitant]
     Active Substance: POTASSIUM
  8. SENNA [Concomitant]
     Active Substance: SENNA LEAF\SENNOSIDES\SENNOSIDES A AND B
  9. DIFLUCAN [Concomitant]
     Active Substance: FLUCONAZOLE
  10. DILAUDID [Concomitant]
     Active Substance: HYDROMORPHONE HYDROCHLORIDE
  11. BACLOFEN. [Concomitant]
     Active Substance: BACLOFEN
  12. DEXAMETHASONE. [Concomitant]
     Active Substance: DEXAMETHASONE
  13. TAMOXIFEN [Concomitant]
     Active Substance: TAMOXIFEN
  14. CYCLOBENZAPRINE. [Concomitant]
     Active Substance: CYCLOBENZAPRINE

REACTIONS (3)
  - Nausea [None]
  - Swelling [None]
  - Vomiting [None]
